FAERS Safety Report 9884997 (Version 2)
Quarter: 2014Q1

REPORT INFORMATION
  Report Type: Report from Study
  Country: CZ (occurrence: CZ)
  Receive Date: 20140210
  Receipt Date: 20140305
  Transmission Date: 20141002
  Serious: Yes (Hospitalization)
  Sender: FDA-Public Use
  Company Number: CZ-JNJFOC-20140201819

PATIENT
  Age: 54 Year
  Sex: Female
  Weight: 61 kg

DRUGS (6)
  1. SIMPONI [Suspect]
     Indication: PRODUCT USED FOR UNKNOWN INDICATION
     Route: 058
     Dates: end: 20131125
  2. METHOTREXATE [Concomitant]
     Indication: IMMUNOSUPPRESSANT DRUG THERAPY
     Route: 048
     Dates: start: 20120603
  3. ARAVA [Concomitant]
     Indication: IMMUNOSUPPRESSANT DRUG THERAPY
     Route: 065
     Dates: start: 20130624
  4. CONTROLOC [Concomitant]
     Route: 048
     Dates: start: 20130128
  5. BLESSIN PLUS H [Concomitant]
     Route: 065
     Dates: start: 20130909
  6. MEDROL [Concomitant]
     Route: 065
     Dates: start: 20131025, end: 20131218

REACTIONS (2)
  - Peritonitis [Recovered/Resolved]
  - Appendicitis [Recovered/Resolved]
